FAERS Safety Report 7692475-X (Version None)
Quarter: 2011Q3

REPORT INFORMATION
  Report Type: 
  Country: None (occurrence: None)
  Receive Date: 20110818
  Receipt Date: 20110808
  Transmission Date: 20111222
  Serious: Yes (Life-Threatening, Hospitalization, Disabling)
  Sender: FDA-Public Use
  Company Number: US-CELGENEUS-163-21880-11081095

PATIENT
  Sex: Male

DRUGS (29)
  1. REVLIMID [Suspect]
     Indication: MYELODYSPLASTIC SYNDROME
     Dosage: 5 MILLIGRAM
     Route: 048
     Dates: start: 20080618
  2. PROCRIT [Concomitant]
     Dosage: 20000 MILLILITER
     Route: 041
     Dates: start: 20090904
  3. COUMADIN [Concomitant]
     Dosage: 5 MILLIGRAM
     Route: 048
     Dates: end: 20101227
  4. LOVASTATIN [Concomitant]
     Dosage: 10 MILLIGRAM
     Route: 048
     Dates: end: 20090403
  5. BENICAR [Concomitant]
     Dosage: 20 MILLIGRAM
     Route: 048
     Dates: end: 20090311
  6. REVLIMID [Suspect]
     Indication: MULTIPLE MYELOMA
     Route: 048
     Dates: start: 20060601, end: 20061201
  7. PREVACID [Concomitant]
     Dosage: 15 MILLIGRAM
     Route: 048
     Dates: start: 20100903
  8. CALCIUM + VITAMIN D [Concomitant]
     Dosage: 500 MILLIGRAM
     Route: 048
  9. GLIPIZIDE [Concomitant]
     Indication: DIABETES MELLITUS
     Dosage: 5 MILLIGRAM
     Route: 048
  10. CALCIUM + VITAMIN D [Concomitant]
     Dosage: 600 MILLIGRAM
     Route: 048
     Dates: start: 20110712
  11. IMODIUM [Concomitant]
     Dosage: 2 MILLIGRAM
     Route: 048
     Dates: start: 20100317
  12. PROCRIT [Concomitant]
     Dosage: 20000 MILLILITER
     Route: 041
     Dates: start: 20080618
  13. PROCRIT [Concomitant]
     Dosage: 40000 MILLILITER
     Route: 041
  14. FOLIC ACID [Concomitant]
     Dosage: 1 MILLIGRAM
     Route: 048
  15. PLAVIX [Concomitant]
     Dosage: 75 MILLIGRAM
     Route: 048
     Dates: end: 20090201
  16. COREG [Concomitant]
     Indication: HYPERTENSION
     Dosage: 10 MILLIGRAM
     Route: 048
     Dates: start: 20101111
  17. LOVASTATIN [Concomitant]
     Dosage: 20 MILLIGRAM
     Route: 048
     Dates: end: 20090311
  18. PRILOSEC [Concomitant]
     Dosage: 20 MILLIGRAM
     Route: 048
     Dates: end: 20100903
  19. ASPIRIN [Concomitant]
     Dosage: 81 MILLIGRAM
     Route: 048
     Dates: end: 20090101
  20. DIGOXIN [Concomitant]
     Indication: ATRIAL FIBRILLATION
     Dosage: .125 MILLIGRAM
     Route: 048
     Dates: end: 20090311
  21. POTASSIUM [Concomitant]
     Route: 048
     Dates: end: 20090311
  22. COREG [Concomitant]
     Dosage: 3.125 MILLIGRAM
     Route: 048
     Dates: end: 20090128
  23. DIGOXIN [Concomitant]
  24. LEVOTHYROXINE SODIUM [Concomitant]
     Dosage: 25 MICROGRAM
     Route: 048
     Dates: end: 20090101
  25. ZANTAC [Concomitant]
     Dosage: 150 MILLIGRAM
     Route: 048
     Dates: end: 20110125
  26. BENICAR [Concomitant]
     Dosage: 20 MILLIGRAM
     Route: 048
     Dates: end: 20080101
  27. VITAMIN B-12 [Concomitant]
     Dosage: 1000 MICROGRAM
     Route: 048
  28. LEVOTHYROXINE SODIUM [Concomitant]
     Dosage: 50 MICROGRAM
     Route: 048
  29. ARANESP [Concomitant]
     Dosage: 200 MILLIGRAM
     Route: 041
     Dates: end: 20080526

REACTIONS (1)
  - HAEMORRHAGE INTRACRANIAL [None]
